FAERS Safety Report 20679954 (Version 1)
Quarter: 2022Q2

REPORT INFORMATION
  Report Type: Report from Study
  Country: US (occurrence: US)
  Receive Date: 20220406
  Receipt Date: 20220406
  Transmission Date: 20220721
  Serious: Yes (Hospitalization, Other)
  Sender: FDA-Public Use
  Company Number: US-CELGENE-USA-20220207468

PATIENT
  Age: 68 Year
  Sex: Male
  Weight: 65.771 kg

DRUGS (7)
  1. REVLIMID [Suspect]
     Active Substance: LENALIDOMIDE
     Indication: Plasma cell myeloma
     Dosage: FREQUENCY TEXT: 21/28 DAYS?25 MILLIGRAM
     Route: 048
     Dates: start: 201106
  2. REVLIMID [Suspect]
     Active Substance: LENALIDOMIDE
     Dosage: FREQUENCY TEXT: 21/28 DAYS?10 MILLIGRAM
     Route: 048
     Dates: start: 201203
  3. REVLIMID [Suspect]
     Active Substance: LENALIDOMIDE
     Dosage: FREQUENCY TEXT: 21/28 DAYS?15 MILLIGRAM
     Route: 048
     Dates: start: 201204
  4. REVLIMID [Suspect]
     Active Substance: LENALIDOMIDE
     Dosage: FREQUENCY TEXT: 21/28 DAYS?10 MILLIGRAM
     Route: 048
     Dates: start: 201205
  5. REVLIMID [Suspect]
     Active Substance: LENALIDOMIDE
     Dosage: FREQUENCY TEXT: 21/28 DAYS?15 MILLIGRAM
     Route: 048
     Dates: start: 201203
  6. FOLIC ACID\IRON [Concomitant]
     Active Substance: FOLIC ACID\IRON
     Indication: Product used for unknown indication
     Dosage: FREQUENCY TEXT: NOT PROVIDED
     Route: 065
  7. ASPIRIN [Concomitant]
     Active Substance: ASPIRIN
     Indication: Product used for unknown indication
     Dosage: FREQUENCY TEXT: NOT PROVIDED
     Route: 065

REACTIONS (6)
  - Cardiac disorder [Unknown]
  - Pain [Unknown]
  - Oropharyngeal pain [Unknown]
  - Arthralgia [Unknown]
  - Cardiac disorder [Unknown]
  - Product dose omission issue [Unknown]
